FAERS Safety Report 9761186 (Version 1)
Quarter: 2013Q4

REPORT INFORMATION
  Report Type: Spontaneous
  Country: NL (occurrence: NL)
  Receive Date: 20131216
  Receipt Date: 20131216
  Transmission Date: 20140711
  Serious: Yes (Hospitalization)
  Sender: FDA-Public Use
  Company Number: NL-PFIZER INC-2013357902

PATIENT
  Age: 69 Year
  Sex: Male
  Weight: 114 kg

DRUGS (2)
  1. LIPITOR [Suspect]
     Indication: PROPHYLAXIS
     Dosage: 10 MG, ONCE DAILY
     Dates: start: 20110713, end: 20131016
  2. BISOPROLOL FUMARATE [Concomitant]
     Dosage: 5 MG, ONCE DAILY
     Dates: start: 20110713

REACTIONS (5)
  - Muscular weakness [Recovering/Resolving]
  - Bladder cancer [Recovering/Resolving]
  - Type 2 diabetes mellitus [Recovering/Resolving]
  - Hernia [Recovering/Resolving]
  - Hypoaesthesia [Recovering/Resolving]
